FAERS Safety Report 5852368-7 (Version None)
Quarter: 2008Q3

REPORT INFORMATION
  Report Type: 
  Country: None (occurrence: None)
  Receive Date: 20080820
  Receipt Date: 20080820
  Transmission Date: 20090109
  Serious: Yes (Hospitalization)
  Sender: FDA-Public Use
  Company Number: None

PATIENT
  Age: 45 Year
  Sex: Male
  Weight: 152.4086 kg

DRUGS (1)
  1. BYETTA [Suspect]

REACTIONS (6)
  - ABDOMINAL PAIN [None]
  - EDUCATIONAL PROBLEM [None]
  - IMPAIRED DRIVING ABILITY [None]
  - PANCREATITIS ACUTE [None]
  - TYPE 1 DIABETES MELLITUS [None]
  - WEIGHT DECREASED [None]
